FAERS Safety Report 9766952 (Version 1)
Quarter: 2013Q4

REPORT INFORMATION
  Report Type: Spontaneous
  Country: US (occurrence: None)
  Receive Date: 20131216
  Receipt Date: 20131216
  Transmission Date: 20140711
  Serious: Yes (Death)
  Sender: FDA-Public Use
  Company Number: None

PATIENT
  Age: 77 Year
  Sex: Male
  Weight: 88.45 kg

DRUGS (19)
  1. G-CSF (GRANULOCYTE COLONY STIMULATING FACTOR) [Suspect]
     Indication: ACUTE MYELOID LEUKAEMIA
     Dosage: QD X 5
     Dates: start: 20111017, end: 20111021
  2. PLERIXAFOR [Suspect]
     Indication: ACUTE MYELOID LEUKAEMIA
     Dosage: QD X 5
     Dates: start: 20111017, end: 20111021
  3. AZACITADINE [Suspect]
     Dosage: QD X 5
     Dates: start: 20111017, end: 20111021
  4. ACYCLOVAIR [Concomitant]
  5. ALLPURINOL [Concomitant]
  6. PRAVASTATIN [Concomitant]
  7. VORICONAZOLE [Concomitant]
  8. AMOXICILLIN-POT CLAVULANATE [Concomitant]
  9. ATENOLOL [Concomitant]
  10. BUTALBITAL-APAP-CAFF-COD [Concomitant]
  11. FLUTICASONE PROPIONATE [Concomitant]
  12. LISINOPRIL [Concomitant]
  13. METFORMIN HCL [Concomitant]
  14. METRONIDAZOLE [Concomitant]
  15. OMEPRAZOLE [Concomitant]
  16. OXYCODONE HCL [Concomitant]
  17. POTASSIUM CHLORIDE ER [Concomitant]
  18. WARFARIN SODIUM [Concomitant]
  19. ZOLPIDEM TARTRATE [Concomitant]

REACTIONS (3)
  - Pancytopenia [None]
  - Acute myeloid leukaemia [None]
  - Malignant neoplasm progression [None]
